FAERS Safety Report 4539774-8 (Version None)
Quarter: 2004Q4

REPORT INFORMATION
  Report Type: 
  Country: None (occurrence: None)
  Receive Date: 20041222
  Receipt Date: 20041210
  Transmission Date: 20050328
  Serious: Yes (Death, Other)
  Sender: FDA-Public Use
  Company Number: 2004077875

PATIENT
  Sex: Female

DRUGS (12)
  1. ZYRTEC [Suspect]
     Indication: ILL-DEFINED DISORDER
  2. SIMVASTATIN [Concomitant]
  3. LISINOPRIL [Concomitant]
  4. ISOSORBIDE MONITRATE (ISOSORBIDE MONITRATE) [Concomitant]
  5. ESOMEPRAZOLE (ESOMEPRAZOLE) [Concomitant]
  6. NARINE REPETABS (LORATADINE, PSEUDOEPHEDRINE SULFATE) [Concomitant]
  7. ARTHROTEC [Concomitant]
  8. CELECOXIB (CELECOXIB) [Concomitant]
  9. HYDROCODONE (HYDROCODONE) [Concomitant]
  10. SERETIDE MITE (FLUTICASONE PROPIONATE, SALMETEROL XINAFOATE) [Concomitant]
  11. RALOXIFENE HCL [Concomitant]
  12. FLUTICASONE PROPIONATE [Concomitant]

REACTIONS (1)
  - ACUTE MYELOID LEUKAEMIA [None]
